FAERS Safety Report 8822323 (Version 1)
Quarter: 2012Q4

REPORT INFORMATION
  Report Type: 
  Country: US (occurrence: US)
  Receive Date: 20121003
  Receipt Date: 20121003
  Transmission Date: 20130627
  Serious: No
  Sender: FDA-Public Use
  Company Number: US-BAYER-2012-099764

PATIENT
  Age: 50 Year
  Sex: Female

DRUGS (1)
  1. MAGNEVIST [Suspect]
     Indication: NUCLEAR MAGNETIC RESONANCE IMAGING BRAIN
     Dosage: 20 ml, UNK
     Route: 042
     Dates: start: 20120921

REACTIONS (4)
  - Throat tightness [None]
  - Throat irritation [None]
  - Sneezing [None]
  - Paraesthesia oral [None]
